FAERS Safety Report 12836179 (Version 1)
Quarter: 2016Q4

REPORT INFORMATION
  Report Type: Spontaneous
  Country: US (occurrence: US)
  Receive Date: 20161008
  Receipt Date: 20161008
  Transmission Date: 20170207
  Serious: Yes (Hospitalization)
  Sender: FDA-Public Use
  Company Number: None

PATIENT
  Age: 79 Year
  Sex: Male
  Weight: 88 kg

DRUGS (3)
  1. DEXAMETHASONE. [Suspect]
     Active Substance: DEXAMETHASONE
     Dates: end: 20160916
  2. VELCADE [Suspect]
     Active Substance: BORTEZOMIB
     Dates: end: 20160916
  3. LENALIDOMIDE (CC-5013) [Suspect]
     Active Substance: LENALIDOMIDE
     Dates: end: 20160918

REACTIONS (8)
  - Platelet count decreased [None]
  - Fatigue [None]
  - Activities of daily living impaired [None]
  - Peripheral sensory neuropathy [None]
  - Toxicity to various agents [None]
  - Asthenia [None]
  - Escherichia test positive [None]
  - Impaired quality of life [None]

NARRATIVE: CASE EVENT DATE: 20160919
